FAERS Safety Report 7056228-8 (Version None)
Quarter: 2010Q4

REPORT INFORMATION
  Report Type: 
  Country: None (occurrence: None)
  Receive Date: 20101021
  Receipt Date: 20101012
  Transmission Date: 20110411
  Serious: Yes (Hospitalization, Other)
  Sender: FDA-Public Use
  Company Number: DK-ABBOTT-10P-044-0634773-00

PATIENT
  Sex: Male
  Weight: 120 kg

DRUGS (1)
  1. REDUCTIL 15MG [Suspect]
     Indication: OBESITY
     Route: 048
     Dates: start: 20070907, end: 20100212

REACTIONS (3)
  - INTERVERTEBRAL DISC PROTRUSION [None]
  - THROMBOTIC CEREBRAL INFARCTION [None]
  - VASOSPASM [None]
